FAERS Safety Report 6593414-5 (Version None)
Quarter: 2010Q1

REPORT INFORMATION
  Report Type: 
  Country: None (occurrence: None)
  Receive Date: 20100222
  Receipt Date: 20090408
  Transmission Date: 20100710
  Serious: No
  Sender: FDA-Public Use
  Company Number: US-BRISTOL-MYERS SQUIBB COMPANY-14581391

PATIENT
  Sex: Female
  Weight: 57 kg

DRUGS (1)
  1. ORENCIA [Suspect]
     Dosage: RECEIVED 3VIALS

REACTIONS (3)
  - FATIGUE [None]
  - HEADACHE [None]
  - INFLUENZA LIKE ILLNESS [None]
